FAERS Safety Report 8012153-7 (Version None)
Quarter: 2011Q4

REPORT INFORMATION
  Report Type: 
  Country: None (occurrence: None)
  Receive Date: 20111228
  Receipt Date: 20111226
  Transmission Date: 20120403
  Serious: Yes (Hospitalization, Other)
  Sender: FDA-Public Use
  Company Number: BR-ABBOTT-11P-020-0876764-00

PATIENT
  Sex: Male
  Weight: 70 kg

DRUGS (5)
  1. UNSPECIFIED DRUG [Concomitant]
     Indication: PRODUCT USED FOR UNKNOWN INDICATION
     Route: 054
     Dates: start: 20111001
  2. HUMIRA [Suspect]
     Dosage: 14 DAYS LATER
     Route: 058
  3. HUMIRA [Suspect]
     Indication: CROHN'S DISEASE
     Dosage: INDUCTION DOSE
  4. MESALAMINE [Concomitant]
     Indication: PRODUCT USED FOR UNKNOWN INDICATION
     Route: 048
     Dates: start: 20111001
  5. HUMIRA [Suspect]
     Dosage: 14 DAYS LATER

REACTIONS (4)
  - HAEMORRHAGE [None]
  - CROHN'S DISEASE [None]
  - SURGERY [None]
  - DIARRHOEA HAEMORRHAGIC [None]
